FAERS Safety Report 7307552-2 (Version None)
Quarter: 2011Q1

REPORT INFORMATION
  Report Type: 
  Country: None (occurrence: None)
  Receive Date: 20110223
  Receipt Date: 20110223
  Transmission Date: 20110831
  Serious: Yes (Other)
  Sender: FDA-Public Use
  Company Number: None

PATIENT
  Age: 46 Year
  Sex: Female
  Weight: 117.4816 kg

DRUGS (1)
  1. ALCOHOL PADS [Suspect]

REACTIONS (4)
  - FATIGUE [None]
  - DECREASED APPETITE [None]
  - APPLICATION SITE ERYTHEMA [None]
  - NAUSEA [None]
